FAERS Safety Report 6664553-5 (Version None)
Quarter: 2010Q2

REPORT INFORMATION
  Report Type: 
  Country: None (occurrence: None)
  Receive Date: 20100401
  Receipt Date: 20100323
  Transmission Date: 20101027
  Serious: Yes (Life-Threatening)
  Sender: FDA-Public Use
  Company Number: JP-WYE-H14293010

PATIENT
  Sex: Male
  Weight: 8 kg

DRUGS (8)
  1. ZOSYN [Suspect]
     Indication: PNEUMONIA
     Dosage: 112.5MG/KG X 3/DAY
     Dates: start: 20091014, end: 20091019
  2. SOLU-MEDROL [Concomitant]
     Route: 041
     Dates: start: 20091014, end: 20091018
  3. PRANLUKAST [Concomitant]
     Indication: ASTHMA
     Route: 048
  4. CLOBAZAM [Concomitant]
     Indication: INFANTILE SPASMS
     Route: 048
  5. ALDACTONE [Concomitant]
     Indication: HEART DISEASE CONGENITAL
     Route: 048
  6. LASIX [Concomitant]
     Indication: HEART DISEASE CONGENITAL
     Route: 048
  7. SOLITA-T3 [Concomitant]
     Route: 041
     Dates: start: 20091014, end: 20091022
  8. DEPAKENE [Concomitant]
     Indication: INFANTILE SPASMS
     Route: 048

REACTIONS (1)
  - CARDIO-RESPIRATORY ARREST [None]
